FAERS Safety Report 10274650 (Version 1)
Quarter: 2014Q3

REPORT INFORMATION
  Report Type: Report from Study
  Country: US (occurrence: US)
  Receive Date: 20140702
  Receipt Date: 20140702
  Transmission Date: 20150326
  Serious: Yes (Other)
  Sender: FDA-Public Use
  Company Number: US-B.I. PHARMACEUTICALS,INC./RIDGEFIELD-2014-BI-29267BI

PATIENT
  Age: 71 Year
  Sex: Male

DRUGS (13)
  1. KLONOPIN [Concomitant]
     Active Substance: CLONAZEPAM
     Dosage: 2 MG
     Route: 065
  2. METHOCARBAMOL. [Concomitant]
     Active Substance: METHOCARBAMOL
     Dosage: DOSE PER APPLICATION AND DAILY DOSE: 750 MG
     Route: 048
  3. NORCO [Concomitant]
     Active Substance: ACETAMINOPHEN\HYDROCODONE BITARTRATE
     Route: 065
  4. CLONAZEPAM. [Concomitant]
     Active Substance: CLONAZEPAM
     Route: 065
  5. TRAZODONE [Concomitant]
     Active Substance: TRAZODONE HYDROCHLORIDE
     Route: 065
  6. KEPPRA [Concomitant]
     Active Substance: LEVETIRACETAM
     Dosage: 1500 MG
     Route: 065
  7. GILOTRIF [Suspect]
     Active Substance: AFATINIB
     Indication: NON-SMALL CELL LUNG CANCER
     Dosage: 40 MG
     Route: 048
     Dates: start: 20140604
  8. LOSARTAN-HCTZ [Concomitant]
     Active Substance: HYDROCHLOROTHIAZIDE\LOSARTAN
     Dosage: DOSE PER APPLICATION AND DAILY DOSE: 100-25 MG ONE HALF EVERY DAY
     Route: 065
  9. SIMVASTATIN. [Concomitant]
     Active Substance: SIMVASTATIN
     Dosage: 20 MG
     Route: 065
  10. HYDROCODONE\ACETAMINOPHEN [Concomitant]
     Active Substance: ACETAMINOPHEN\HYDROCODONE
     Indication: PROCEDURAL PAIN
     Dosage: DOSE PER APPLICATION AND DAILY DOSE: 7.5-325 MG 1-2 TABLETS
     Route: 065
  11. KLOR-CON [Concomitant]
     Active Substance: POTASSIUM CHLORIDE
     Dosage: DOSE PER APPICATION AND DAILY DOSE: M-10 PER DAY
     Route: 065
  12. GILOTRIF [Suspect]
     Active Substance: AFATINIB
     Dosage: 40 MG
     Route: 048
     Dates: start: 20140617
  13. LEXAPRO [Concomitant]
     Active Substance: ESCITALOPRAM OXALATE
     Route: 065
     Dates: start: 201401

REACTIONS (11)
  - Epistaxis [Unknown]
  - Dermatitis bullous [Not Recovered/Not Resolved]
  - Erythema [Not Recovered/Not Resolved]
  - Swelling face [Not Recovered/Not Resolved]
  - Rash [Not Recovered/Not Resolved]
  - Purpura [Not Recovered/Not Resolved]
  - Mouth haemorrhage [Unknown]
  - Eye haemorrhage [Unknown]
  - Diarrhoea [Unknown]
  - Ear haemorrhage [Unknown]
  - Peripheral swelling [Not Recovered/Not Resolved]

NARRATIVE: CASE EVENT DATE: 20140604
